FAERS Safety Report 18531194 (Version 1)
Quarter: 2020Q4

REPORT INFORMATION
  Report Type: Other
  Country: US (occurrence: US)
  Receive Date: 20201122
  Receipt Date: 20201122
  Transmission Date: 20210114
  Serious: Yes (Hospitalization, Other)
  Sender: FDA-Public Use
  Company Number: US-NOVA LABORATORIES LIMITED-2096146

PATIENT
  Age: 55 Year
  Sex: Male

DRUGS (3)
  1. PURIXAN [Suspect]
     Active Substance: MERCAPTOPURINE
     Indication: CROHN^S DISEASE
  2. MESALAMINE (MESALAMINE) [Suspect]
     Active Substance: MESALAMINE
     Route: 048
  3. ADALIMUMAB (ADALIMUMAB) [Suspect]
     Active Substance: ADALIMUMAB

REACTIONS (2)
  - Squamous cell carcinoma [Not Recovered/Not Resolved]
  - Crohn^s disease [Unknown]
